FAERS Safety Report 12864708 (Version 3)
Quarter: 2017Q1

REPORT INFORMATION
  Report Type: Spontaneous
  Country: US (occurrence: US)
  Receive Date: 20161020
  Receipt Date: 20170112
  Transmission Date: 20170428
  Serious: Yes (Hospitalization)
  Sender: FDA-Public Use
  Company Number: US-BIOGEN-2016BI00306412

PATIENT
  Sex: Female

DRUGS (2)
  1. AVONEX [Suspect]
     Active Substance: INTERFERON BETA-1A
     Route: 065
     Dates: start: 20150613
  2. AVONEX [Suspect]
     Active Substance: INTERFERON BETA-1A
     Indication: MULTIPLE SCLEROSIS
     Route: 065
     Dates: start: 20150522

REACTIONS (8)
  - Depression [Unknown]
  - Dizziness [Unknown]
  - Depressed mood [Unknown]
  - Visual impairment [Unknown]
  - Stress [Unknown]
  - Asthenia [Unknown]
  - Pneumonia [Recovered/Resolved]
  - Weight decreased [Unknown]
